FAERS Safety Report 10658344 (Version 3)
Quarter: 2014Q4

REPORT INFORMATION
  Report Type: Spontaneous
  Country: GB (occurrence: GB)
  Receive Date: 20141217
  Receipt Date: 20141224
  Transmission Date: 20150529
  Serious: Yes (Life-Threatening, Hospitalization, Disabling, Other)
  Sender: FDA-Public Use
  Company Number: GB-AMGEN-GBRSP2014092641

PATIENT
  Age: 39 Year
  Sex: Male

DRUGS (4)
  1. ENBREL [Suspect]
     Active Substance: ETANERCEPT
     Indication: RHEUMATOID ARTHRITIS
     Dosage: 50 MG, UNK
     Route: 058
     Dates: start: 20140917, end: 20141121
  2. NAPROXEN. [Concomitant]
     Active Substance: NAPROXEN
     Dosage: UNK
  3. FOLIC ACID. [Concomitant]
     Active Substance: FOLIC ACID
     Dosage: UNK
  4. METHOTREXATE [Concomitant]
     Active Substance: METHOTREXATE
     Dosage: UNK

REACTIONS (8)
  - Hypotonia [Unknown]
  - Alanine aminotransferase increased [Unknown]
  - Ataxia [Unknown]
  - Paraesthesia [Unknown]
  - Gait disturbance [Unknown]
  - Muscular weakness [Unknown]
  - Asthenia [Unknown]
  - Guillain-Barre syndrome [Not Recovered/Not Resolved]

NARRATIVE: CASE EVENT DATE: 201411
